FAERS Safety Report 13898112 (Version 2)
Quarter: 2017Q3

REPORT INFORMATION
  Report Type: Report from Study
  Country: BR (occurrence: BR)
  Receive Date: 20170824
  Receipt Date: 20170905
  Transmission Date: 20171127
  Serious: Yes (Other)
  Sender: FDA-Public Use
  Company Number: PHHY2017BR123691

PATIENT
  Sex: Male
  Weight: 60 kg

DRUGS (2)
  1. EXELON PATCH [Suspect]
     Active Substance: RIVASTIGMINE
     Indication: MEMORY IMPAIRMENT
     Dosage: 4.6 MG, QD PATCH 5 (CM2)
     Route: 062
  2. EXELON PATCH [Suspect]
     Active Substance: RIVASTIGMINE
     Indication: PARKINSON^S DISEASE
     Dosage: 9.5 MG, QD PATCH 10 (CM2)
     Route: 062

REACTIONS (8)
  - Gait inability [Unknown]
  - Weight decreased [Not Recovered/Not Resolved]
  - Eating disorder [Unknown]
  - Memory impairment [Unknown]
  - Fall [Unknown]
  - Condition aggravated [Unknown]
  - Femur fracture [Unknown]
  - Drug ineffective [Unknown]
